FAERS Safety Report 9458589 (Version 1)
Quarter: 2013Q3

REPORT INFORMATION
  Report Type: Report from Study
  Country: US (occurrence: US)
  Receive Date: 20130814
  Receipt Date: 20130814
  Transmission Date: 20140515
  Serious: Yes (Death, Other)
  Sender: FDA-Public Use
  Company Number: PHEH2013US017186

PATIENT
  Age: 23 Year
  Sex: Female

DRUGS (2)
  1. TOBI [Suspect]
     Indication: CYSTIC FIBROSIS
     Dosage: 300 MG, (BID X 28 DAYS ON AND 28 DAYS OFF)
     Dates: start: 20071129, end: 20130627
  2. TOBI [Suspect]
     Dosage: UNK
     Dates: end: 20130627

REACTIONS (3)
  - Death [Fatal]
  - Cardiopulmonary failure [Not Recovered/Not Resolved]
  - Infective pulmonary exacerbation of cystic fibrosis [Not Recovered/Not Resolved]
